FAERS Safety Report 4544998-X (Version None)
Quarter: 2005Q1

REPORT INFORMATION
  Report Type: 
  Country: None (occurrence: None)
  Receive Date: 20050103
  Receipt Date: 20050103
  Transmission Date: 20050727
  Serious: Yes (Hospitalization)
  Sender: FDA-Public Use
  Company Number: None

PATIENT
  Sex: Male
  Weight: 83 kg

DRUGS (1)
  1. ZOSYN [Suspect]
     Indication: CELLULITIS
     Dosage: 4.5G IV  Q8H
     Route: 042
     Dates: start: 20031118, end: 20031124

REACTIONS (3)
  - BLISTER [None]
  - HAEMORRHAGE [None]
  - PRURITUS [None]
